FAERS Safety Report 11245084 (Version 8)
Quarter: 2015Q3

REPORT INFORMATION
  Report Type: Report from Study
  Country: IE (occurrence: IE)
  Receive Date: 20150707
  Receipt Date: 20150928
  Transmission Date: 20151125
  Serious: Yes (Disabling, Other)
  Sender: FDA-Public Use
  Company Number: IE-BAYER-2015-307636

PATIENT
  Age: 75 Year
  Sex: Male

DRUGS (5)
  1. STIVARGA [Suspect]
     Active Substance: REGORAFENIB
     Indication: COLORECTAL CANCER METASTATIC
     Dosage: 120 MG, QD, IN PM
     Route: 048
     Dates: start: 20150630
  2. LYRICA [Concomitant]
     Active Substance: PREGABALIN
     Dosage: 25 MG, BID
  3. STIVARGA [Suspect]
     Active Substance: REGORAFENIB
     Indication: COLORECTAL CANCER METASTATIC
     Dosage: 160 MG, DAILY, AM
     Route: 048
     Dates: start: 20150528, end: 2015
  4. STIVARGA [Suspect]
     Active Substance: REGORAFENIB
     Indication: COLORECTAL CANCER METASTATIC
     Dosage: 80 MG, PM
     Route: 048
     Dates: start: 20150716, end: 20150819
  5. STIVARGA [Suspect]
     Active Substance: REGORAFENIB
     Indication: COLORECTAL CANCER METASTATIC
     Dosage: 120 MG, QD, IN AM
     Route: 048
     Dates: start: 20150613

REACTIONS (9)
  - Pain in extremity [None]
  - Diarrhoea [None]
  - Diarrhoea [None]
  - Diarrhoea [None]
  - Neuropathy peripheral [None]
  - Decreased appetite [None]
  - Pain in extremity [None]
  - Fatigue [None]
  - Dehydration [None]

NARRATIVE: CASE EVENT DATE: 20150530
